FAERS Safety Report 14187231 (Version 1)
Quarter: 2017Q4

REPORT INFORMATION
  Report Type: Spontaneous
  Country: FR (occurrence: FR)
  Receive Date: 20171114
  Receipt Date: 20171114
  Transmission Date: 20180321
  Serious: Yes (Other)
  Sender: FDA-Public Use
  Company Number: FR-LPDUSPRD-20171538

PATIENT
  Age: 49 Year
  Sex: Female

DRUGS (1)
  1. FERINJECT [Suspect]
     Active Substance: FERRIC CARBOXYMALTOSE
     Dosage: 1 GM,1 IN 1 TOTAL
     Route: 041
     Dates: start: 20170726, end: 20170726

REACTIONS (1)
  - Radioisotope scan abnormal [Unknown]

NARRATIVE: CASE EVENT DATE: 20170727
